FAERS Safety Report 6038306-5 (Version None)
Quarter: 2009Q1

REPORT INFORMATION
  Report Type: 
  Country: None (occurrence: None)
  Receive Date: 20090115
  Receipt Date: 20090108
  Transmission Date: 20090719
  Serious: Yes (Life-Threatening, Hospitalization)
  Sender: FDA-Public Use
  Company Number: US-NOVOPROD-278304

PATIENT
  Sex: Female
  Weight: 46 kg

DRUGS (6)
  1. NORDITROPIN NORDIFLEX [Suspect]
     Indication: HAEMODIALYSIS
     Dosage: .9 MG, QD
     Route: 058
     Dates: start: 20080625, end: 20080808
  2. HUMALOG [Concomitant]
     Dosage: 3 IU, TID
     Route: 058
     Dates: start: 20061221
  3. LABETALOL [Concomitant]
     Dosage: 200 MG, BID
     Route: 048
     Dates: start: 20060809
  4. LASIX [Concomitant]
     Dosage: 80 MG, QD
     Route: 048
     Dates: start: 20080331
  5. INSULIN [Concomitant]
     Indication: HYPERGLYCAEMIA
     Dates: start: 20080809
  6. LEVAQUIN [Concomitant]

REACTIONS (1)
  - HAEMORRHAGE INTRACRANIAL [None]
